FAERS Safety Report 22188412 (Version 1)
Quarter: 2023Q2

REPORT INFORMATION
  Report Type: Spontaneous
  Country: US (occurrence: US)
  Receive Date: 20230408
  Receipt Date: 20230408
  Transmission Date: 20230722
  Serious: No
  Sender: FDA-Public Use
  Company Number: US-TEVA-2023-US-2870488

PATIENT
  Age: 82 Year
  Sex: Male

DRUGS (4)
  1. PRAVASTATIN [Suspect]
     Active Substance: PRAVASTATIN
     Indication: Blood cholesterol increased
     Route: 065
  2. PRAVASTATIN [Suspect]
     Active Substance: PRAVASTATIN
     Route: 065
  3. DILTIAZEM [Suspect]
     Active Substance: DILTIAZEM
     Indication: Product used for unknown indication
     Route: 065
  4. SOTALOL [Suspect]
     Active Substance: SOTALOL
     Indication: Product used for unknown indication
     Route: 065

REACTIONS (6)
  - Fatigue [Unknown]
  - Dyspnoea [Unknown]
  - Blood pressure fluctuation [Unknown]
  - Vision blurred [Unknown]
  - Adverse event [Unknown]
  - Cardiac pacemaker insertion [Unknown]
